FAERS Safety Report 5157460-0 (Version None)
Quarter: 2006Q4

REPORT INFORMATION
  Report Type: 
  Country: None (occurrence: None)
  Receive Date: 20061115
  Receipt Date: 20061102
  Transmission Date: 20070319
  Serious: Yes (Hospitalization)
  Sender: FDA-Public Use
  Company Number: 2006PV021088

PATIENT
  Age: 77 Year
  Sex: Male
  Weight: 102.9665 kg

DRUGS (10)
  1. BYETTA [Suspect]
     Indication: DIABETES MELLITUS NON-INSULIN-DEPENDENT
     Dosage: 10 MCG;BID;SC; SEE IMAGE
     Route: 058
     Dates: start: 20060807, end: 20060904
  2. BYETTA [Suspect]
     Indication: DIABETES MELLITUS NON-INSULIN-DEPENDENT
     Dosage: 10 MCG;BID;SC; SEE IMAGE
     Route: 058
     Dates: start: 20060905
  3. GLIMEPIRIDE [Concomitant]
  4. LANTUS [Concomitant]
  5. PROTONIX [Concomitant]
  6. BENZONATATE [Concomitant]
  7. METOCLOPRAMIDE [Concomitant]
  8. TRIAMTERENE [Concomitant]
  9. PRIMIDONE [Concomitant]
  10. MULTIPLE VITAMINS FOR SENIORS [Concomitant]

REACTIONS (8)
  - BRONCHOPNEUMONIA [None]
  - FEELING ABNORMAL [None]
  - INCOHERENT [None]
  - LIVER FUNCTION TEST ABNORMAL [None]
  - NAUSEA [None]
  - URINARY INCONTINENCE [None]
  - VOMITING [None]
  - WEIGHT DECREASED [None]
